FAERS Safety Report 6571190-X (Version None)
Quarter: 2010Q1

REPORT INFORMATION
  Report Type: 
  Country: None (occurrence: None)
  Receive Date: 20100129
  Receipt Date: 20100113
  Transmission Date: 20100710
  Serious: Yes (Death, Hospitalization)
  Sender: FDA-Public Use
  Company Number: 2009AC000199

PATIENT
  Age: 75 Year
  Sex: Male

DRUGS (29)
  1. DIGOXIN [Suspect]
     Dosage: 0.125 MG;QD;PO
     Route: 048
     Dates: start: 20060411, end: 20080527
  2. DIGOXIN [Suspect]
     Dosage: 0.125 MG;QD;PO
     Route: 048
     Dates: start: 20050701, end: 20080601
  3. FINASTERIDE [Concomitant]
  4. FLUTICASONE PROPIONATE [Concomitant]
  5. METOPROLOL TARTRATE [Concomitant]
  6. HYDROCODONE BITARTRATE [Concomitant]
  7. WARFARIN SODIUM [Concomitant]
  8. SPIRIVA [Concomitant]
  9. LEXAPRO [Concomitant]
  10. SINGULAIR [Concomitant]
  11. AZITHROMYCIN [Concomitant]
  12. FLOMAX [Concomitant]
  13. ATROVENT [Concomitant]
  14. FEXOFENADINE [Concomitant]
  15. OMEPRAZOLE [Concomitant]
  16. AVELOX [Concomitant]
  17. QUININE SULFATE [Concomitant]
  18. PROMETHAZINE [Concomitant]
  19. METRONIADAZOLE [Concomitant]
  20. CHOLESTYRAMINE [Concomitant]
  21. MECLIZINE [Concomitant]
  22. LORAZEPAM [Concomitant]
  23. LEVAQUIN [Concomitant]
  24. AMBIEN [Concomitant]
  25. AMOXICILLIN [Concomitant]
  26. PREDNISONE [Concomitant]
  27. MYTUSSIN [Concomitant]
  28. CLARITHROMYCIN [Concomitant]
  29. TOPROL-XL [Concomitant]

REACTIONS (14)
  - ABDOMINAL MASS [None]
  - ABDOMINAL PAIN [None]
  - ACTIVITIES OF DAILY LIVING IMPAIRED [None]
  - ANHEDONIA [None]
  - BRADYCARDIA [None]
  - CARDIO-RESPIRATORY ARREST [None]
  - DEPRESSION [None]
  - ECONOMIC PROBLEM [None]
  - EMOTIONAL DISTRESS [None]
  - FATIGUE [None]
  - MENTAL DISORDER [None]
  - MULTIPLE INJURIES [None]
  - PAIN [None]
  - PALLOR [None]
